FAERS Safety Report 7761726-5 (Version None)
Quarter: 2011Q3

REPORT INFORMATION
  Report Type: 
  Country: None (occurrence: None)
  Receive Date: 20110920
  Receipt Date: 20110912
  Transmission Date: 20111222
  Serious: Yes (Other)
  Sender: FDA-Public Use
  Company Number: PHFR2011GB02795

PATIENT
  Sex: Female

DRUGS (7)
  1. CLOZAPINE [Suspect]
     Dosage: 475 MG/DAY
  2. LITHIUM CARBONATE [Concomitant]
     Indication: DEPRESSION
     Dosage: 1.2 G, QD
     Route: 048
     Dates: start: 20090501
  3. ZOLPIDEM [Concomitant]
     Indication: INSOMNIA
     Dosage: 10 MG, QD
     Route: 048
  4. ARIPIPRAZOLE [Concomitant]
     Indication: PSYCHOTIC DISORDER
     Dosage: 5 MG, QD
     Route: 048
     Dates: start: 20011101
  5. DIAZEPAM [Concomitant]
     Indication: ANXIETY
     Dosage: 15 MG, QD
     Route: 048
     Dates: start: 20080101
  6. CLOZAPINE [Suspect]
     Indication: SCHIZOPHRENIA
     Dosage: 450 MG, QD
     Route: 048
     Dates: start: 20080813
  7. VENLAFAXINE HYDROCHLORIDE [Concomitant]
     Indication: DEPRESSION
     Dosage: 375 MG, QD
     Route: 048
     Dates: start: 20100601

REACTIONS (1)
  - ELECTROCARDIOGRAM QT PROLONGED [None]
